FAERS Safety Report 23606360 (Version 3)
Quarter: 2024Q2

REPORT INFORMATION
  Report Type: Report from Study
  Country: US (occurrence: US)
  Receive Date: 20240307
  Receipt Date: 20240410
  Transmission Date: 20240716
  Serious: Yes (Hospitalization)
  Sender: FDA-Public Use
  Company Number: US-Eisai-EC-2024-160610

PATIENT
  Age: 67 Year
  Sex: Male
  Weight: 131 kg

DRUGS (6)
  1. LENVIMA [Suspect]
     Active Substance: LENVATINIB
     Indication: Renal cancer
     Route: 048
     Dates: start: 20240216, end: 20240227
  2. LENVIMA [Suspect]
     Active Substance: LENVATINIB
     Route: 048
     Dates: start: 2024
  3. FAMOTIDINE [Concomitant]
     Active Substance: FAMOTIDINE
  4. LORATADINE [Concomitant]
     Active Substance: LORATADINE
  5. TAMSULOSIN [Concomitant]
     Active Substance: TAMSULOSIN
  6. TRAMADOL [Concomitant]
     Active Substance: TRAMADOL\TRAMADOL HYDROCHLORIDE

REACTIONS (3)
  - Malignant neoplasm progression [Unknown]
  - Erythema [Recovering/Resolving]
  - Oedema blister [Recovered/Resolved]

NARRATIVE: CASE EVENT DATE: 20240101
